FAERS Safety Report 13706500 (Version 2)
Quarter: 2017Q3

REPORT INFORMATION
  Report Type: Spontaneous
  Country: JP (occurrence: JP)
  Receive Date: 20170630
  Receipt Date: 20170714
  Transmission Date: 20171127
  Serious: No
  Sender: FDA-Public Use
  Company Number: JP-ABBVIE-17P-087-2022491-00

PATIENT
  Sex: Male

DRUGS (1)
  1. LEUPROLIDE ACETATE. [Suspect]
     Active Substance: LEUPROLIDE ACETATE
     Indication: PROSTATE CANCER
     Dosage: 11.25 MG, Q3MONTHS
     Route: 058

REACTIONS (4)
  - Arthralgia [Unknown]
  - Bone pain [Unknown]
  - Osteoporosis [Unknown]
  - Prostatic specific antigen abnormal [Unknown]
